FAERS Safety Report 23115414 (Version 1)
Quarter: 2023Q4

REPORT INFORMATION
  Report Type: Spontaneous
  Country: US (occurrence: None)
  Receive Date: 20231026
  Receipt Date: 20231026
  Transmission Date: 20240109
  Serious: Yes (Life-Threatening, Hospitalization)
  Sender: FDA-Public Use
  Company Number: None

PATIENT
  Age: 67 Year
  Sex: Female

DRUGS (1)
  1. WARFARIN [Suspect]
     Active Substance: WARFARIN

REACTIONS (6)
  - Pain in extremity [None]
  - International normalised ratio increased [None]
  - Peripheral swelling [None]
  - Fluid retention [None]
  - Drain placement [None]
  - Purulent discharge [None]

NARRATIVE: CASE EVENT DATE: 20230812
